FAERS Safety Report 4382015-5 (Version None)
Quarter: 2004Q2

REPORT INFORMATION
  Report Type: 
  Country: None (occurrence: None)
  Receive Date: 20040615
  Receipt Date: 20040609
  Transmission Date: 20050107
  Serious: Yes (Other)
  Sender: FDA-Public Use
  Company Number: GBWYE815609JUN04

PATIENT
  Sex: Female

DRUGS (1)
  1. MINOCIN [Suspect]

REACTIONS (2)
  - BENIGN INTRACRANIAL HYPERTENSION [None]
  - RED BLOOD CELL SEDIMENTATION RATE INCREASED [None]
